FAERS Safety Report 4750323-1 (Version None)
Quarter: 2005Q3

REPORT INFORMATION
  Report Type: 
  Country: None (occurrence: None)
  Receive Date: 20050818
  Receipt Date: 20050808
  Transmission Date: 20060218
  Serious: Yes (Other)
  Sender: FDA-Public Use
  Company Number: 2005112725

PATIENT
  Age: 52 Year
  Sex: Female
  Weight: 65 kg

DRUGS (4)
  1. LYRICA [Suspect]
     Indication: PAIN
     Dosage: 150 MG 75 MG, 2 IN 1 D) ORAL
     Route: 048
     Dates: start: 20050201, end: 20050601
  2. CLIMAVAL (ESTRADIOL VALERATE) [Concomitant]
  3. LOSEC (OMEPRAZOLE) [Concomitant]
  4. DIHYDROCODEINE (DIHYDROCODEINE) [Concomitant]

REACTIONS (1)
  - DEPRESSION [None]
